FAERS Safety Report 19723553 (Version 1)
Quarter: 2021Q3

REPORT INFORMATION
  Report Type: Report from Study
  Country: None (occurrence: CA)
  Receive Date: 20210820
  Receipt Date: 20210820
  Transmission Date: 20211014
  Serious: Yes (Other)
  Sender: FDA-Public Use
  Company Number: CA-ABBVIE-21K-028-4044674-00

PATIENT
  Age: 67 Year
  Sex: Female

DRUGS (1)
  1. HUMIRA [Suspect]
     Active Substance: ADALIMUMAB
     Indication: RHEUMATOID ARTHRITIS
     Route: 058
     Dates: start: 20200401

REACTIONS (5)
  - Pain [Recovered/Resolved]
  - Joint effusion [Not Recovered/Not Resolved]
  - Burning sensation [Recovered/Resolved]
  - Pain in extremity [Not Recovered/Not Resolved]
  - Inflammation [Recovering/Resolving]

NARRATIVE: CASE EVENT DATE: 202102
